FAERS Safety Report 9471895 (Version 2)
Quarter: 2013Q3

REPORT INFORMATION
  Report Type: Spontaneous
  Country: AT (occurrence: AT)
  Receive Date: 20130823
  Receipt Date: 20130823
  Transmission Date: 20140515
  Serious: Yes (Other)
  Sender: FDA-Public Use
  Company Number: AT-ROCHE-1262921

PATIENT
  Sex: Female

DRUGS (18)
  1. BEVACIZUMAB [Suspect]
     Indication: PRODUCT USED FOR UNKNOWN INDICATION
     Route: 065
     Dates: start: 201006, end: 201007
  2. BEVACIZUMAB [Suspect]
     Route: 065
     Dates: end: 201101
  3. BEVACIZUMAB [Suspect]
     Route: 065
     Dates: start: 201101, end: 201103
  4. TRASTUZUMAB [Suspect]
     Indication: PRODUCT USED FOR UNKNOWN INDICATION
     Route: 065
     Dates: start: 200809, end: 200909
  5. TRASTUZUMAB [Suspect]
     Route: 065
     Dates: start: 201109, end: 201202
  6. CAPECITABINE [Suspect]
     Indication: PRODUCT USED FOR UNKNOWN INDICATION
     Route: 065
     Dates: start: 201006, end: 201007
  7. EPIRUBICIN [Suspect]
     Indication: PRODUCT USED FOR UNKNOWN INDICATION
     Route: 065
  8. 5-FU [Suspect]
     Indication: PRODUCT USED FOR UNKNOWN INDICATION
     Route: 065
     Dates: start: 200804, end: 200807
  9. CYCLOPHOSPHAMIDE [Suspect]
     Indication: PRODUCT USED FOR UNKNOWN INDICATION
     Route: 065
     Dates: start: 200804, end: 200807
  10. DOCETAXEL [Suspect]
     Indication: PRODUCT USED FOR UNKNOWN INDICATION
     Route: 065
     Dates: start: 200804, end: 200807
  11. PACLITAXEL [Suspect]
     Indication: PRODUCT USED FOR UNKNOWN INDICATION
     Route: 065
     Dates: end: 201101
  12. DOXORUBICIN [Suspect]
     Indication: PRODUCT USED FOR UNKNOWN INDICATION
     Route: 065
     Dates: start: 201006, end: 201007
  13. DOXORUBICIN [Suspect]
     Route: 065
     Dates: start: 201104, end: 201109
  14. LAPATINIB [Suspect]
     Indication: PRODUCT USED FOR UNKNOWN INDICATION
     Route: 065
     Dates: start: 201006, end: 201007
  15. LAPATINIB [Suspect]
     Route: 065
     Dates: start: 201104, end: 201109
  16. LAPATINIB [Suspect]
     Route: 065
     Dates: start: 201109, end: 201202
  17. VINORELBINE [Suspect]
     Indication: PRODUCT USED FOR UNKNOWN INDICATION
     Route: 048
     Dates: start: 201006, end: 201007
  18. ARIMIDEX [Concomitant]
     Route: 065
     Dates: start: 200809, end: 201006

REACTIONS (3)
  - Drug intolerance [Unknown]
  - Hepatic neoplasm [Unknown]
  - Metastases to central nervous system [Unknown]
